FAERS Safety Report 25507804 (Version 4)
Quarter: 2025Q3

REPORT INFORMATION
  Report Type: Spontaneous
  Country: US (occurrence: US)
  Receive Date: 20250703
  Receipt Date: 20250812
  Transmission Date: 20251020
  Serious: Yes (Life-Threatening, Hospitalization, Other)
  Sender: Unknown Manufacturer
  Company Number: US-862174955-ML2025-03144

PATIENT
  Age: 76 Year
  Sex: Female
  Weight: 63 kg

DRUGS (14)
  1. CLINDAMYCIN HYDROCHLORIDE [Suspect]
     Active Substance: CLINDAMYCIN HYDROCHLORIDE
     Indication: Nasal operation
     Route: 048
     Dates: start: 20250127
  2. FAMOTIDINE [Concomitant]
     Active Substance: FAMOTIDINE
     Indication: Product used for unknown indication
     Dosage: 40 MG PO DAILY
     Route: 048
  3. levothyroxine [Synthroid] 50 mcg tablet [Concomitant]
     Indication: Product used for unknown indication
     Dosage: 50 MCG PO DAILY
     Route: 048
  4. Timolol maleate 0.5 % eye droos [Concomitant]
     Indication: Product used for unknown indication
     Dosage: 1 DRP OPHTHALMIC (EYE) BID; RIGHT EYE
     Route: 047
  5. propranolol 120 mg capsule,24 hr extended release [Concomitant]
     Indication: Tremor
     Dosage: 120 MG PO DAILY
     Route: 048
  6. PROPRANOLOL HYDROCHLORIDE [Concomitant]
     Active Substance: PROPRANOLOL HYDROCHLORIDE
     Indication: Tremor
     Dosage: 20 MG PO DAILY PRN (REASON: TREMORS)?RX INSTRUCTIONS:?TAKES WITH THE EXTENDED RELEASE PROPRANOLOL 12
     Route: 048
  7. duloxetine 30 mg capsule,delayed release(DR/EC) [Concomitant]
     Indication: Product used for unknown indication
     Dosage: 30 MG PO DAILY
     Route: 048
  8. liothyronine 5 mcg tablet [Concomitant]
     Indication: Product used for unknown indication
     Dosage: 5 MCG PO DAILY
     Route: 048
  9. aspirin 81 mg Tablet,Chewable [Concomitant]
     Indication: Product used for unknown indication
     Dosage: 81 MG PO DAILY
     Route: 048
  10. Vitamin B complex tablet [Concomitant]
     Indication: Product used for unknown indication
     Dosage: 1 TAB PO DAILY
     Route: 048
  11. cholecalciferol (vitamin D3) [Vitamin D3] 25 mcg (1,000 unit) Tablet [Concomitant]
     Indication: Product used for unknown indication
     Dosage: 2,000 UNIT PO DAILY
     Route: 048
  12. melatonin 10 mg Tablet [Concomitant]
     Indication: Sleep disorder
     Dosage: 10 MG PO QPM PRN (REASON: SLEEP)?RX INSTRUCTIONS:?BEDTIME
     Route: 048
  13. acidophilus 100 million cell-pectin, citrus 10 mg capsule [Concomitant]
     Indication: Product used for unknown indication
     Dosage: 1 CAP PO DAILY
     Route: 048
  14. omeprazole 40 mg capsule,delayed release [Concomitant]
     Indication: Product used for unknown indication
     Dosage: 40 MG PO DAILY
     Route: 048

REACTIONS (10)
  - Septic shock [Recovered/Resolved]
  - Hypovolaemic shock [Recovered/Resolved]
  - Illness [Recovered/Resolved]
  - Fatigue [Recovered/Resolved]
  - Feeding disorder [Recovered/Resolved]
  - Dizziness [Recovered/Resolved]
  - Decreased appetite [Recovered/Resolved]
  - Clostridium difficile colitis [Recovered/Resolved]
  - Nausea [Recovered/Resolved]
  - Diarrhoea [Recovered/Resolved]

NARRATIVE: CASE EVENT DATE: 20250301
